FAERS Safety Report 7010823-0 (Version None)
Quarter: 2010Q3

REPORT INFORMATION
  Report Type: 
  Country: None (occurrence: None)
  Receive Date: 20100923
  Receipt Date: 20100923
  Transmission Date: 20110219
  Serious: Yes (Other)
  Sender: FDA-Public Use
  Company Number: None

PATIENT
  Age: 52 Year
  Sex: Female
  Weight: 127.0072 kg

DRUGS (1)
  1. POLYTRIM [Suspect]
     Indication: CONJUNCTIVITIS INFECTIVE
     Dates: start: 20100919, end: 20100920

REACTIONS (9)
  - EYE DISCHARGE [None]
  - EYE IRRITATION [None]
  - EYE PRURITUS [None]
  - EYELID MARGIN CRUSTING [None]
  - EYELID OEDEMA [None]
  - OCULAR HYPERAEMIA [None]
  - PERIORBITAL DISORDER [None]
  - PERIORBITAL OEDEMA [None]
  - SKIN BURNING SENSATION [None]
